FAERS Safety Report 8287895-9 (Version None)
Quarter: 2012Q2

REPORT INFORMATION
  Report Type: 
  Country: None (occurrence: None)
  Receive Date: 20120416
  Receipt Date: 20120406
  Transmission Date: 20120825
  Serious: Yes (Hospitalization)
  Sender: FDA-Public Use
  Company Number: FR-ASTRAZENECA-2012SE22730

PATIENT
  Age: 7388 Day
  Sex: Female

DRUGS (3)
  1. MONTELUKAST SODIUM [Suspect]
     Dates: start: 20120331
  2. PULMICORT [Suspect]
     Route: 055
     Dates: start: 20120331
  3. DESLORATADINE [Suspect]
     Route: 048
     Dates: start: 20120331

REACTIONS (2)
  - CONTUSION [None]
  - THROMBOCYTOPENIA [None]
